FAERS Safety Report 13677334 (Version 1)
Quarter: 2017Q2

REPORT INFORMATION
  Report Type: Spontaneous
  Country: IT (occurrence: IT)
  Receive Date: 20170622
  Receipt Date: 20170622
  Transmission Date: 20170830
  Serious: Yes (Hospitalization, Other)
  Sender: FDA-Public Use
  Company Number: IT-MYLANLABS-2017M1037691

PATIENT

DRUGS (15)
  1. IMIPENEM [Suspect]
     Active Substance: IMIPENEM
     Indication: DIARRHOEA HAEMORRHAGIC
     Route: 064
  2. METRONIDAZOLE. [Suspect]
     Active Substance: METRONIDAZOLE
     Indication: DIARRHOEA
  3. ATOSIBAN [Suspect]
     Active Substance: ATOSIBAN
     Indication: TOCOLYSIS
     Route: 064
  4. VANCOMYCIN [Suspect]
     Active Substance: VANCOMYCIN
     Indication: INFLAMMATION
  5. AMIKACIN [Suspect]
     Active Substance: AMIKACIN
     Indication: INFLAMMATION
  6. AMIKACIN [Suspect]
     Active Substance: AMIKACIN
     Indication: DIARRHOEA
  7. METRONIDAZOLE. [Suspect]
     Active Substance: METRONIDAZOLE
     Indication: PYREXIA
     Route: 064
  8. MEROPENEM. [Suspect]
     Active Substance: MEROPENEM
     Indication: DIARRHOEA
  9. VANCOMYCIN [Suspect]
     Active Substance: VANCOMYCIN
     Indication: DIARRHOEA
  10. CLINDAMYCIN. [Suspect]
     Active Substance: CLINDAMYCIN
     Indication: DIARRHOEA HAEMORRHAGIC
     Route: 064
     Dates: start: 20131004, end: 20131008
  11. MEROPENEM. [Suspect]
     Active Substance: MEROPENEM
     Indication: PYREXIA
     Route: 064
  12. VANCOMYCIN [Suspect]
     Active Substance: VANCOMYCIN
     Indication: PYREXIA
     Route: 064
  13. METRONIDAZOLE. [Suspect]
     Active Substance: METRONIDAZOLE
     Indication: INFLAMMATION
  14. AMIKACIN [Suspect]
     Active Substance: AMIKACIN
     Indication: PYREXIA
     Route: 064
  15. MEROPENEM. [Suspect]
     Active Substance: MEROPENEM
     Indication: INFLAMMATION

REACTIONS (3)
  - Premature baby [Unknown]
  - Foetal exposure during pregnancy [Recovered/Resolved]
  - Low birth weight baby [Unknown]
